FAERS Safety Report 15380107 (Version 1)
Quarter: 2018Q3

REPORT INFORMATION
  Report Type: Spontaneous
  Country: US (occurrence: US)
  Receive Date: 20180913
  Receipt Date: 20180913
  Transmission Date: 20181010
  Serious: No
  Sender: FDA-Public Use
  Company Number: US-ASTELLAS-2018US017646

PATIENT
  Sex: Male

DRUGS (1)
  1. XTANDI [Suspect]
     Active Substance: ENZALUTAMIDE
     Indication: PROSTATE CANCER
     Route: 048

REACTIONS (7)
  - Nausea [Unknown]
  - Irritability [Unknown]
  - Toothache [Unknown]
  - Dizziness [Unknown]
  - Headache [Unknown]
  - Nasal congestion [Unknown]
  - Fatigue [Unknown]
